FAERS Safety Report 8313319-9 (Version None)
Quarter: 2012Q2

REPORT INFORMATION
  Report Type: 
  Country: None (occurrence: None)
  Receive Date: 20120426
  Receipt Date: 20120413
  Transmission Date: 20120825
  Serious: Yes (Other)
  Sender: FDA-Public Use
  Company Number: PHHY2012JP031961

PATIENT
  Age: 61 Year
  Sex: Male

DRUGS (4)
  1. NEORAL [Suspect]
     Indication: GLOMERULONEPHRITIS MEMBRANOUS
  2. PREDNISOLONE [Suspect]
     Indication: GLOMERULONEPHRITIS MEMBRANOUS
  3. ANGIOTENSIN II ANTAGONISTS [Concomitant]
     Indication: GLOMERULONEPHRITIS MEMBRANOUS
  4. FUROSEMIDE [Concomitant]
     Indication: DIURETIC THERAPY
     Dosage: 20 MG, UNK

REACTIONS (3)
  - TRANSAMINASES INCREASED [None]
  - DIABETES MELLITUS [None]
  - BLOOD CREATININE INCREASED [None]
